FAERS Safety Report 24647259 (Version 1)
Quarter: 2024Q4

REPORT INFORMATION
  Report Type: Spontaneous
  Country: IT (occurrence: IT)
  Receive Date: 20241121
  Receipt Date: 20241121
  Transmission Date: 20250115
  Serious: Yes (Other)
  Sender: MYLAN
  Company Number: IT-MYLANLABS-2024M1104474

PATIENT
  Age: 71 Year
  Sex: Male

DRUGS (8)
  1. DOXORUBICIN [Suspect]
     Active Substance: DOXORUBICIN
     Indication: Hodgkin^s disease nodular sclerosis stage IV
     Dosage: 25 MILLIGRAM/SQ. METER, CYCLE, ON DAY?1 AND DAY?15 OF EACH CYCLE OF 28?DAYS, FOR 6?CYCLES IN TOTAL
     Route: 065
     Dates: start: 2022
  2. DOXORUBICIN [Suspect]
     Active Substance: DOXORUBICIN
     Indication: Hodgkin^s disease
  3. ADCETRIS [Suspect]
     Active Substance: BRENTUXIMAB VEDOTIN
     Indication: Hodgkin^s disease nodular sclerosis stage IV
     Dosage: 1.2 MILLIGRAM/KILOGRAM, ON DAY?1 AND DAY?15 OF EACH CYCLE OF 28?DAYS, FOR 6?CYCLES IN TOTAL
     Route: 065
     Dates: start: 2022
  4. ADCETRIS [Suspect]
     Active Substance: BRENTUXIMAB VEDOTIN
     Indication: Hodgkin^s disease
  5. VINBLASTINE [Suspect]
     Active Substance: VINBLASTINE
     Indication: Hodgkin^s disease nodular sclerosis stage IV
     Dosage: 6 MILLIGRAM/SQ. METER, CYCLE, ON DAY?1 AND DAY?15 OF EACH CYCLE OF 28?DAYS, FOR 6?CYCLES IN TOTAL
     Route: 065
     Dates: start: 2022
  6. VINBLASTINE [Suspect]
     Active Substance: VINBLASTINE
     Indication: Hodgkin^s disease
  7. DACARBAZINE [Suspect]
     Active Substance: DACARBAZINE
     Indication: Hodgkin^s disease nodular sclerosis stage IV
     Dosage: 375 MILLIGRAM/SQ. METER, CYCLE, ON DAY?1 AND DAY?15 OF EACH CYCLE OF 28?DAYS, FOR 6?CYCLES IN TOTAL
     Route: 065
     Dates: start: 2022
  8. DACARBAZINE [Suspect]
     Active Substance: DACARBAZINE
     Indication: Hodgkin^s disease

REACTIONS (6)
  - Neurotoxicity [Recovered/Resolved]
  - Posterior reversible encephalopathy syndrome [Recovered/Resolved]
  - Dysphonia [Recovered/Resolved]
  - Wallerian degeneration [Recovering/Resolving]
  - Febrile neutropenia [Recovering/Resolving]
  - Neuropathy peripheral [Recovering/Resolving]

NARRATIVE: CASE EVENT DATE: 20220101
